FAERS Safety Report 14540389 (Version 2)
Quarter: 2018Q1

REPORT INFORMATION
  Report Type: Spontaneous
  Country: DE (occurrence: DE)
  Receive Date: 20180216
  Receipt Date: 20180302
  Transmission Date: 20180509
  Serious: Yes (Life-Threatening, Hospitalization, Other)
  Sender: FDA-Public Use
  Company Number: DE-009507513-1802DEU008198

PATIENT
  Age: 52 Year
  Sex: Female
  Weight: 57 kg

DRUGS (1)
  1. NUVARING [Suspect]
     Active Substance: ETHINYL ESTRADIOL\ETONOGESTREL
     Indication: CONTRACEPTION
     Dosage: UNK
     Route: 067
     Dates: start: 200711, end: 201802

REACTIONS (4)
  - Cardiac arrest [Recovered/Resolved]
  - Arrhythmia [Unknown]
  - Sudden cardiac death [Recovered/Resolved]
  - Silent myocardial infarction [Unknown]

NARRATIVE: CASE EVENT DATE: 201708
